FAERS Safety Report 9047368 (Version 1)
Quarter: 2013Q1

REPORT INFORMATION
  Report Type: Spontaneous
  Country: HU (occurrence: HU)
  Receive Date: 20130201
  Receipt Date: 20130201
  Transmission Date: 20140127
  Serious: No
  Sender: FDA-Public Use
  Company Number: HU-ELI_LILLY_AND_COMPANY-HU201301008031

PATIENT
  Age: 36 Year
  Sex: Female

DRUGS (2)
  1. ZYPADHERA [Suspect]
     Dosage: UNK
     Route: 030
  2. MEDROL [Concomitant]
     Indication: COLITIS ULCERATIVE

REACTIONS (1)
  - Leukocytosis [Unknown]
